FAERS Safety Report 10008927 (Version 1)
Quarter: 2014Q1

REPORT INFORMATION
  Report Type: Spontaneous
  Country: US (occurrence: US)
  Receive Date: 20140313
  Receipt Date: 20140313
  Transmission Date: 20141002
  Serious: No
  Sender: FDA-Public Use
  Company Number: US-INCYTE CORPORATION-2012IN001005

PATIENT
  Age: 56 Year
  Sex: Female

DRUGS (6)
  1. JAKAFI [Suspect]
     Indication: MYELOFIBROSIS
     Dosage: 15 MG, QD
     Route: 048
     Dates: start: 20120523, end: 20120603
  2. JAKAFI [Suspect]
     Dosage: 15 MG, BID
     Route: 048
     Dates: start: 20120604
  3. CYMBALTA [Concomitant]
     Dosage: 60 MG, QD
  4. SYNTHROID [Concomitant]
     Dosage: 100 MCG, QD
  5. ZANAFLEX [Concomitant]
     Dosage: 2 MG, QD
  6. PRILOSEC [Concomitant]
     Dosage: 40 MG, QD

REACTIONS (2)
  - Fatigue [Unknown]
  - Haemoglobin increased [Unknown]
